FAERS Safety Report 20597761 (Version 7)
Quarter: 2023Q1

REPORT INFORMATION
  Report Type: Report from Study
  Country: CA (occurrence: CA)
  Receive Date: 20220315
  Receipt Date: 20230216
  Transmission Date: 20230417
  Serious: Yes (Other)
  Sender: FDA-Public Use
  Company Number: CA-OTSUKA-2021_025200

PATIENT
  Sex: Female

DRUGS (6)
  1. CEDAZURIDINE\DECITABINE [Suspect]
     Active Substance: CEDAZURIDINE\DECITABINE
     Indication: Myelodysplastic syndrome
     Dosage: UNK, TID 1-5 DAYS EVERY 28 DAY CYCLE
     Route: 065
     Dates: start: 20210524
  2. CEDAZURIDINE\DECITABINE [Suspect]
     Active Substance: CEDAZURIDINE\DECITABINE
     Dosage: UNK, QD 1-3 DAYS EVERY 28 DAY CYCLE
     Route: 065
  3. CEDAZURIDINE\DECITABINE [Suspect]
     Active Substance: CEDAZURIDINE\DECITABINE
     Dosage: UNK, QD 1-4 DAYS EVERY 28 DAY CYCLE
     Route: 065
  4. CEDAZURIDINE\DECITABINE [Suspect]
     Active Substance: CEDAZURIDINE\DECITABINE
     Dosage: UNK, QD 1,3 AND 5 DAYS OF 28 DAY CYCLE
     Route: 048
  5. CEDAZURIDINE\DECITABINE [Suspect]
     Active Substance: CEDAZURIDINE\DECITABINE
     Dosage: 3 TABLETS WITH INQOVI
     Route: 065
  6. CEDAZURIDINE\DECITABINE [Suspect]
     Active Substance: CEDAZURIDINE\DECITABINE
     Dosage: UNK (3 TABLETS EVERY 5 WEEKS)
     Route: 065

REACTIONS (15)
  - Full blood count abnormal [Unknown]
  - Haemorrhoidal haemorrhage [Unknown]
  - Platelet count decreased [Unknown]
  - Eastern Cooperative Oncology Group performance status worsened [Unknown]
  - Feeling abnormal [Unknown]
  - Endodontic procedure [Unknown]
  - Sleep disorder [Unknown]
  - General physical health deterioration [Unknown]
  - Constipation [Unknown]
  - Vertigo [Unknown]
  - Stomatitis [Recovering/Resolving]
  - COVID-19 [Recovering/Resolving]
  - Fatigue [Not Recovered/Not Resolved]
  - Inappropriate schedule of product administration [Unknown]
  - Intentional dose omission [Unknown]
